FAERS Safety Report 12996269 (Version 1)
Quarter: 2016Q4

REPORT INFORMATION
  Report Type: Spontaneous
  Country: US (occurrence: US)
  Receive Date: 20161203
  Receipt Date: 20161203
  Transmission Date: 20170207
  Serious: No
  Sender: FDA-Public Use
  Company Number: US-ASTRAZENECA-2016SF17815

PATIENT
  Age: 27 Year
  Sex: Female
  Weight: 88.5 kg

DRUGS (4)
  1. SEROQUEL XR [Suspect]
     Active Substance: QUETIAPINE FUMARATE
     Indication: MAJOR DEPRESSION
     Route: 048
     Dates: start: 201208
  2. PREMAFORM MONOLITHIUM [Concomitant]
     Indication: CONTRACEPTION
     Dosage: DAILY
     Route: 048
  3. IBUPROFEN. [Concomitant]
     Active Substance: IBUPROFEN
     Indication: DYSMENORRHOEA
     Dosage: 800.0MG AS REQUIRED
     Route: 048
     Dates: start: 2012
  4. QSYMIA [Interacting]
     Active Substance: PHENTERMINE HYDROCHLORIDE\TOPIRAMATE
     Indication: WEIGHT DECREASED
     Dosage: UNKNOWN
     Route: 065

REACTIONS (8)
  - Depression [Unknown]
  - Drug interaction [Unknown]
  - Malaise [Unknown]
  - Irritability [Unknown]
  - Insomnia [Unknown]
  - Drug withdrawal syndrome [Unknown]
  - Weight increased [Unknown]
  - Drug dose omission [Unknown]

NARRATIVE: CASE EVENT DATE: 2013
